FAERS Safety Report 10382378 (Version 1)
Quarter: 2014Q3

REPORT INFORMATION
  Report Type: Report from Study
  Country: US (occurrence: US)
  Receive Date: 20140813
  Receipt Date: 20140813
  Transmission Date: 20150326
  Serious: Yes (Hospitalization)
  Sender: FDA-Public Use
  Company Number: US-009507513-1408USA003820

PATIENT
  Age: 60 Year
  Sex: Male
  Weight: 94.9 kg

DRUGS (6)
  1. PACLITAXEL. [Suspect]
     Active Substance: PACLITAXEL
     Indication: NON-SMALL CELL LUNG CANCER
     Dosage: 200 MG/M2, OVER 3 HOURS ON DAY 0, CYCLE 6
     Route: 042
     Dates: start: 20121212, end: 20121212
  2. VORINOSTAT [Suspect]
     Active Substance: VORINOSTAT
     Indication: NON-SMALL CELL LUNG CANCER
     Dosage: CYCLE 6 TOTAL DOSE ADMINISTERED THIS COURSE 800 MG
     Route: 048
     Dates: start: 20121212, end: 20121214
  3. PACLITAXEL. [Suspect]
     Active Substance: PACLITAXEL
     Dosage: 200 MG/M2, OVER 3 HOURS ON DAY 0, CYCLE 1
     Route: 042
     Dates: start: 20120827, end: 20120827
  4. VORINOSTAT [Suspect]
     Active Substance: VORINOSTAT
     Dosage: CYCLE 1
     Route: 048
     Dates: start: 20120825
  5. CARBOPLATIN. [Suspect]
     Active Substance: CARBOPLATIN
     Indication: NON-SMALL CELL LUNG CANCER
     Dosage: AUC = 6 MG/ML, OVER 30 MIN ON DAY 0, CYCLE 6
     Route: 042
     Dates: start: 20121212, end: 20121212
  6. CARBOPLATIN. [Suspect]
     Active Substance: CARBOPLATIN
     Dosage: AUC = 6 MG/ML, OVER 30 MIN ON DAY 0, CYCLE 1
     Route: 042
     Dates: start: 20120827, end: 20120827

REACTIONS (1)
  - Hepatic cirrhosis [Not Recovered/Not Resolved]

NARRATIVE: CASE EVENT DATE: 20140804
